FAERS Safety Report 4383926-7 (Version None)
Quarter: 2004Q2

REPORT INFORMATION
  Report Type: 
  Country: None (occurrence: None)
  Receive Date: 20040621
  Receipt Date: 20040604
  Transmission Date: 20050107
  Serious: Yes (Other)
  Sender: FDA-Public Use
  Company Number: FR-JNJFOC-20040603059

PATIENT
  Age: 25 Year
  Sex: Male

DRUGS (4)
  1. HALDOL [Suspect]
     Indication: AUTOMATISM
     Dosage: 250 MG , 1 IN 30 DAY, INTRA-MUSCULAR
     Route: 030
  2. HALDOL [Suspect]
     Indication: SCHIZOPHRENIA
     Dosage: 250 MG , 1 IN 30 DAY, INTRA-MUSCULAR
     Route: 030
  3. LOXAPINE SUCCINATE [Concomitant]
  4. OXAZEPAM [Concomitant]

REACTIONS (1)
  - HEPATIC STEATOSIS [None]
